FAERS Safety Report 9204519 (Version 1)
Quarter: 2013Q1

REPORT INFORMATION
  Report Type: Spontaneous
  Country: US (occurrence: None)
  Receive Date: 20120709
  Receipt Date: 20120709
  Transmission Date: 20140127
  Serious: Yes (Other)
  Sender: FDA-Public Use
  Company Number: PHEH2011US009136

PATIENT
  Age: 47 Year
  Sex: Female
  Weight: 91.2 kg

DRUGS (5)
  1. GLEEVEC (IMATINIB) [Suspect]
     Indication: CHRONIC MYELOID LEUKAEMIA
     Route: 048
     Dates: start: 20090202
  2. TYLENOL (PARACETAMOL) [Concomitant]
  3. ZOLPIDEM (ZOLPIDEM) [Concomitant]
  4. PHENOBARBITAL (PHENOBARBITAL) [Concomitant]
  5. COMPAZINE (PROCHLORPERAZINE EDISYLATE) [Concomitant]

REACTIONS (6)
  - Depression [None]
  - Alopecia [None]
  - Oedema peripheral [None]
  - Nausea [None]
  - Muscle spasms [None]
  - Weight increased [None]
